FAERS Safety Report 18022147 (Version 1)
Quarter: 2020Q3

REPORT INFORMATION
  Report Type: Spontaneous
  Country: PT (occurrence: PT)
  Receive Date: 20200714
  Receipt Date: 20200714
  Transmission Date: 20201103
  Serious: Yes (Death)
  Sender: FDA-Public Use
  Company Number: PT-MYLANLABS-2020M1064136

PATIENT
  Age: 81 Year
  Sex: Female
  Weight: 47 kg

DRUGS (18)
  1. AMOXICILLIN W/CLAVULANIC ACID [Concomitant]
     Active Substance: AMOXICILLIN\CLAVULANIC ACID
     Dosage: 3 DOSAGE FORM, QD
     Route: 042
     Dates: start: 20200310, end: 20200320
  2. LOPINAVIR/RITONAVIR [Suspect]
     Active Substance: LOPINAVIR\RITONAVIR
     Indication: COVID-19 PNEUMONIA
     Dosage: 4 DOSAGE FORM, QD(2 COMP 12/12H)
     Route: 048
     Dates: start: 20200320
  3. FUROSEMIDE. [Concomitant]
     Active Substance: FUROSEMIDE
     Dosage: UNK
     Route: 042
     Dates: start: 20200320, end: 20200324
  4. ACETYLSALICYLIC ACID [Concomitant]
     Active Substance: ASPIRIN
     Dosage: 100 MILLIGRAM, QD
     Route: 048
     Dates: start: 20200317, end: 20200320
  5. LOSARTAN POTASSIUM/HYDROCHLOROTHIAZIDE [Concomitant]
     Active Substance: HYDROCHLOROTHIAZIDE\LOSARTAN POTASSIUM
     Dosage: 1 DOSAGE FORM, QD
     Route: 048
     Dates: start: 20200317, end: 20200320
  6. EPSICAPROM [Concomitant]
     Dosage: 3000 MILLIGRAM, QD
     Route: 048
     Dates: start: 20200320, end: 20200324
  7. CLARITHROMYCIN. [Concomitant]
     Active Substance: CLARITHROMYCIN
     Dosage: 1000 MILLIGRAM, QD
     Route: 042
     Dates: start: 20200310, end: 20200320
  8. SALBUTAMOL [Concomitant]
     Active Substance: ALBUTEROL
     Dosage: 8 DOSAGE FORM, QD
     Route: 055
     Dates: start: 20200313, end: 20200320
  9. OMEPRAZOLE. [Concomitant]
     Active Substance: OMEPRAZOLE
     Dosage: 20 MILLIGRAM, QD
     Route: 048
     Dates: start: 20200316, end: 20200323
  10. PLAQUINOL [Suspect]
     Active Substance: HYDROXYCHLOROQUINE SULFATE
     Indication: COVID-19 PNEUMONIA
     Dosage: 400 MILLIGRAM, QD(400MG 12/12H EM D0)
     Route: 048
     Dates: start: 20200320
  11. PIPERACILLIN/TAZOBACTAM [Concomitant]
     Active Substance: PIPERACILLIN SODIUM\TAZOBACTAM SODIUM
     Dosage: 3 DOSAGE FORM, QD
     Dates: start: 20200321, end: 20200324
  12. CAPTOPRIL. [Concomitant]
     Active Substance: CAPTOPRIL
     Dosage: 25 MILLIGRAM, PRN
     Route: 048
     Dates: start: 20200317, end: 20200323
  13. BUSCOPAN [Concomitant]
     Active Substance: BUTYLSCOPOLAMINE BROMIDE
     Dosage: 30 MILLIGRAM, QD
     Route: 048
     Dates: start: 20200320, end: 20200324
  14. PARACETAMOL [Concomitant]
     Active Substance: ACETAMINOPHEN
     Dosage: 1000 MILLIGRAM, PRN
     Route: 042
     Dates: start: 20200310
  15. IPRATROPIUM BROMIDE. [Concomitant]
     Active Substance: IPRATROPIUM BROMIDE
     Dosage: 8 DOSAGE FORM, QD
     Route: 055
     Dates: start: 20200313, end: 20200320
  16. SODIUM CHLORIDE. [Concomitant]
     Active Substance: SODIUM CHLORIDE
     Dosage: UNK
     Route: 042
     Dates: start: 20200314
  17. IRBESARTAN. [Concomitant]
     Active Substance: IRBESARTAN
     Dosage: 150 MILLIGRAM, QD
     Route: 048
     Dates: start: 20200320, end: 20200322
  18. ENOXAPARIN SODIUM. [Concomitant]
     Active Substance: ENOXAPARIN SODIUM
     Dosage: 40 MILLIGRAM, QD
     Dates: start: 20200310, end: 20200320

REACTIONS (5)
  - Off label use [Unknown]
  - Diarrhoea [Recovered/Resolved]
  - Cholestasis [Fatal]
  - COVID-19 treatment [Fatal]
  - Renal failure [Fatal]

NARRATIVE: CASE EVENT DATE: 20200321
